FAERS Safety Report 9552290 (Version 2)
Quarter: 2013Q3

REPORT INFORMATION
  Report Type: Spontaneous
  Country: GB (occurrence: GB)
  Receive Date: 20130925
  Receipt Date: 20130925
  Transmission Date: 20140515
  Serious: Yes (Other)
  Sender: FDA-Public Use
  Company Number: GB-ROCHE-1256715

PATIENT
  Age: 70 Year
  Sex: Female
  Weight: 74 kg

DRUGS (3)
  1. LUCENTIS [Suspect]
     Indication: CHORIORETINOPATHY
     Route: 050
     Dates: start: 20130705
  2. LUCENTIS [Suspect]
     Indication: AGE-RELATED MACULAR DEGENERATION
  3. EYLEA [Concomitant]

REACTIONS (8)
  - Uveitis [Unknown]
  - Conjunctival disorder [Recovered/Resolved]
  - Ocular discomfort [Unknown]
  - Metamorphopsia [Recovered/Resolved]
  - Visual acuity reduced [Recovered/Resolved]
  - Eye pain [Recovered/Resolved]
  - Eye discharge [Recovered/Resolved]
  - Age-related macular degeneration [Unknown]
